FAERS Safety Report 20060928 (Version 2)
Quarter: 2021Q4

REPORT INFORMATION
  Report Type: Spontaneous
  Country: DE (occurrence: DE)
  Receive Date: 20211112
  Receipt Date: 20211125
  Transmission Date: 20220303
  Serious: Yes (Other)
  Sender: FDA-Public Use
  Company Number: DE-ROCHE-2930351

PATIENT
  Age: 46 Year

DRUGS (2)
  1. ERLOTINIB [Suspect]
     Active Substance: ERLOTINIB
     Indication: Squamous cell carcinoma of the vulva
     Dosage: 100 MILLIGRAM, UNK
     Route: 048
  2. ERLOTINIB [Suspect]
     Active Substance: ERLOTINIB
     Dosage: 150 MILLIGRAM, UNK
     Route: 048

REACTIONS (3)
  - Clostridium difficile colitis [Unknown]
  - Hepatic enzyme increased [Unknown]
  - Skin fissures [Unknown]
